FAERS Safety Report 5731508-4 (Version None)
Quarter: 2008Q2

REPORT INFORMATION
  Report Type: 
  Country: None (occurrence: None)
  Receive Date: 20080506
  Receipt Date: 20080506
  Transmission Date: 20081010
  Serious: Yes (Other)
  Sender: FDA-Public Use
  Company Number: None

PATIENT
  Sex: Female
  Weight: 88.4514 kg

DRUGS (1)
  1. DIGITEK 0.125MG WALMART PHARMACY [Suspect]
     Indication: CARDIAC FAILURE CONGESTIVE
     Dosage: 1 TABLET 1 PER DAY PO
     Route: 048
     Dates: start: 20040516, end: 20080505

REACTIONS (7)
  - CHEST DISCOMFORT [None]
  - DIZZINESS [None]
  - EYE DISORDER [None]
  - NAUSEA [None]
  - PAIN IN EXTREMITY [None]
  - PARAESTHESIA [None]
  - PRURITUS GENERALISED [None]
